FAERS Safety Report 9597881 (Version 1)
Quarter: 2013Q4

REPORT INFORMATION
  Report Type: Spontaneous
  Country: US (occurrence: US)
  Receive Date: 20131004
  Receipt Date: 20131004
  Transmission Date: 20140711
  Serious: No
  Sender: FDA-Public Use
  Company Number: US-AMGEN-USASP2013021395

PATIENT
  Age: 46 Year
  Sex: Female
  Weight: 68.03 kg

DRUGS (14)
  1. ENBREL [Suspect]
     Indication: RHEUMATOID ARTHRITIS
     Dosage: 50 MG, QWK
     Route: 058
     Dates: start: 2007, end: 2010
  2. SINGULAIR [Concomitant]
     Dosage: 4 MG, UNK
  3. FOLIC ACID [Concomitant]
     Dosage: 20 MG, UNK
  4. METHOTREXATE [Concomitant]
     Dosage: 2.5 MG, UNK
  5. PLAQUENIL                          /00072602/ [Concomitant]
     Dosage: 200 MG, UNK
  6. IBUPROFEN [Concomitant]
     Dosage: 200 MG, UNK
  7. BENADRYL ALLERGY                   /00000402/ [Concomitant]
     Dosage: 25 MG, UNK
  8. MULTIVITAMIN                       /00097801/ [Concomitant]
     Dosage: UNK
  9. CALCIUM [Concomitant]
     Dosage: 500 UNK, UNK
  10. VITAMIN C                          /00008001/ [Concomitant]
     Dosage: 500 MG, UNK
  11. CO Q 10                            /00517201/ [Concomitant]
     Dosage: 100 MG, UNK
  12. VITAMIN B6 [Concomitant]
     Dosage: 50 MG, UNK
  13. VITAMIN E                          /00110501/ [Concomitant]
     Dosage: 400 UNIT, UNK
  14. BUPROPION [Concomitant]
     Dosage: 75 MG, UNK

REACTIONS (1)
  - Sinusitis [Unknown]
